FAERS Safety Report 6072536-1 (Version None)
Quarter: 2009Q1

REPORT INFORMATION
  Report Type: 
  Country: None (occurrence: None)
  Receive Date: 20090210
  Receipt Date: 20090202
  Transmission Date: 20090719
  Serious: Yes (Death)
  Sender: FDA-Public Use
  Company Number: BR-AVENTIS-200911199GDDC

PATIENT
  Sex: Male

DRUGS (2)
  1. LANTUS [Suspect]
     Route: 058
     Dates: end: 20090124
  2. OPTIPEN (INSULIN PUMP) [Suspect]

REACTIONS (1)
  - POST PROCEDURAL COMPLICATION [None]
